FAERS Safety Report 7717950-0 (Version None)
Quarter: 2011Q3

REPORT INFORMATION
  Report Type: 
  Country: None (occurrence: None)
  Receive Date: 20110830
  Receipt Date: 20110822
  Transmission Date: 20111222
  Serious: Yes (Other)
  Sender: FDA-Public Use
  Company Number: JP-ALLERGAN-1110494US

PATIENT
  Age: 67 Year
  Sex: Male
  Weight: 54 kg

DRUGS (9)
  1. MUCOSTA [Concomitant]
     Dosage: 100 MG, TID
     Route: 048
     Dates: start: 20110511
  2. HARNAL D [Concomitant]
     Dosage: 0.2 MG, QD
     Route: 048
  3. WARFARIN SODIUM [Concomitant]
     Dosage: 1.5 MG, QD
     Route: 048
     Dates: start: 20110311
  4. GAMOFA D [Concomitant]
     Dosage: 40 MG, QD
     Route: 048
     Dates: start: 20110311
  5. SYMMETREL [Concomitant]
     Dosage: 50 MG, QD
     Route: 048
     Dates: start: 20110411
  6. MAGNESIUM OXIDE [Concomitant]
     Dosage: 1 G, BID
     Route: 048
     Dates: start: 20110311
  7. ENALAPRIL MALEATE [Concomitant]
     Dosage: 5 MG, QD
     Route: 048
     Dates: start: 20110509
  8. MARZULENE [Concomitant]
     Dosage: 1.5 G, QD
     Route: 048
     Dates: start: 20110511
  9. BOTOX [Suspect]
     Indication: SPASTIC PARALYSIS
     Dosage: 300 IU, SINGLE
     Route: 030
     Dates: start: 20110615, end: 20110615

REACTIONS (1)
  - URINARY RETENTION [None]
